FAERS Safety Report 6310235-9 (Version None)
Quarter: 2009Q3

REPORT INFORMATION
  Report Type: 
  Country: None (occurrence: None)
  Receive Date: 20090811
  Receipt Date: 20090728
  Transmission Date: 20100115
  Serious: Yes (Hospitalization)
  Sender: FDA-Public Use
  Company Number: KV200801317

PATIENT
  Age: 67 Year
  Sex: Female
  Weight: 66.2 kg

DRUGS (3)
  1. MORPHINE SULFATE [Suspect]
     Indication: BACK PAIN
     Dosage: 60 MG, BID, ORAL
     Route: 048
     Dates: start: 20080125, end: 20080625
  2. MORPHINE [Suspect]
     Indication: BACK PAIN
     Dosage: 15 MG, PRN, ORAL
     Route: 048
     Dates: start: 20080101
  3. ATENOLOL [Concomitant]

REACTIONS (4)
  - DIZZINESS [None]
  - DYSPNOEA [None]
  - FALL [None]
  - PRODUCT QUALITY ISSUE [None]
